FAERS Safety Report 7600360-4 (Version None)
Quarter: 2011Q2

REPORT INFORMATION
  Report Type: 
  Country: None (occurrence: None)
  Receive Date: 20110629
  Receipt Date: 20110621
  Transmission Date: 20111010
  Serious: Yes (Disabling, Other)
  Sender: FDA-Public Use
  Company Number: ACO_25337_2011

PATIENT
  Age: 61 Year
  Sex: Male
  Weight: 90.7 kg

DRUGS (5)
  1. CARVEDILOL [Concomitant]
  2. GABAPENTIN [Concomitant]
  3. AMPYRA [Suspect]
     Indication: GAIT DISTURBANCE
     Dosage: 10 MG, BID, ORAL; 10 MG, QD, ORAL
     Route: 048
     Dates: start: 20110521, end: 20110617
  4. AMPYRA [Suspect]
     Indication: GAIT DISTURBANCE
     Dosage: 10 MG, BID, ORAL; 10 MG, QD, ORAL
     Route: 048
     Dates: start: 20110618, end: 20110620
  5. LISINOPRIL [Concomitant]

REACTIONS (5)
  - INAPPROPRIATE SCHEDULE OF DRUG ADMINISTRATION [None]
  - DYSSTASIA [None]
  - ASTHENIA [None]
  - CONSTIPATION [None]
  - HEADACHE [None]
